FAERS Safety Report 25205421 (Version 1)
Quarter: 2025Q2

REPORT INFORMATION
  Report Type: Spontaneous
  Country: CN (occurrence: CN)
  Receive Date: 20250417
  Receipt Date: 20250417
  Transmission Date: 20250717
  Serious: Yes (Other)
  Sender: BAXTER
  Company Number: None

PATIENT
  Age: 30 Year
  Sex: Female
  Weight: 70 kg

DRUGS (4)
  1. CYCLOPHOSPHAMIDE [Suspect]
     Active Substance: CYCLOPHOSPHAMIDE
     Indication: Breast cancer female
     Dosage: 1 G, QD, INJECTION
     Route: 041
     Dates: start: 20250228, end: 20250228
  2. SODIUM CHLORIDE [Suspect]
     Active Substance: SODIUM CHLORIDE
     Dosage: 50 ML QD,IVGTT. D1 (VEHICLE 0.9% SODIUM CHLORIDE INJECTION WITH CYCLOPHOSPHAMIDE)
     Route: 041
     Dates: start: 20250228, end: 20250228
  3. DEXTROSE [Suspect]
     Active Substance: DEXTROSE MONOHYDRATE
     Dosage: 750 ML, QD, IVGTT, D1 (VEHICLE 5% GLUCOSE INJECTION WITH DOXORUBICIN
     Route: 041
     Dates: start: 20250228
  4. DOXORUBICIN HYDROCHLORIDE [Suspect]
     Active Substance: DOXORUBICIN HYDROCHLORIDE
     Indication: Breast cancer female
     Dosage: 55 MG, QD, PREPARED BY SELF
     Route: 041
     Dates: start: 20250228, end: 20250228

REACTIONS (1)
  - Leukopenia [Unknown]

NARRATIVE: CASE EVENT DATE: 20250320
